FAERS Safety Report 23838613 (Version 1)
Quarter: 2024Q2

REPORT INFORMATION
  Report Type: Spontaneous
  Country: PL (occurrence: PL)
  Receive Date: 20240509
  Receipt Date: 20240509
  Transmission Date: 20240715
  Serious: Yes (Other)
  Sender: FDA-Public Use
  Company Number: PL-PFM-2024-02616

PATIENT
  Age: 4 Month
  Sex: Male

DRUGS (9)
  1. NELARABINE [Suspect]
     Active Substance: NELARABINE
     Indication: Li-Fraumeni syndrome
     Dosage: UNK
     Route: 065
     Dates: start: 202202
  2. NELARABINE [Suspect]
     Active Substance: NELARABINE
     Indication: T-cell type acute leukaemia
  3. TOPOTECAN [Suspect]
     Active Substance: TOPOTECAN HYDROCHLORIDE
     Indication: T-cell type acute leukaemia
     Dosage: UNK
     Route: 065
     Dates: start: 202202
  4. TOPOTECAN [Suspect]
     Active Substance: TOPOTECAN HYDROCHLORIDE
     Indication: Li-Fraumeni syndrome
  5. THIOTEPA [Suspect]
     Active Substance: THIOTEPA
     Indication: T-cell type acute leukaemia
     Dosage: UNK
     Route: 065
     Dates: start: 202202
  6. THIOTEPA [Suspect]
     Active Substance: THIOTEPA
     Indication: Li-Fraumeni syndrome
  7. VINORELBINE [Suspect]
     Active Substance: VINORELBINE TARTRATE
     Indication: Li-Fraumeni syndrome
     Dosage: UNK
     Route: 065
     Dates: start: 202202
  8. VINORELBINE [Suspect]
     Active Substance: VINORELBINE TARTRATE
     Indication: Off label use
  9. VINORELBINE [Suspect]
     Active Substance: VINORELBINE TARTRATE
     Indication: T-cell type acute leukaemia

REACTIONS (4)
  - Graft versus host disease [Unknown]
  - Product use in unapproved indication [Unknown]
  - Product use issue [Unknown]
  - Off label use [Unknown]

NARRATIVE: CASE EVENT DATE: 20220201
